FAERS Safety Report 18078755 (Version 1)
Quarter: 2020Q3

REPORT INFORMATION
  Report Type: Report from Study
  Country: TH (occurrence: TH)
  Receive Date: 20200728
  Receipt Date: 20200728
  Transmission Date: 20201103
  Serious: Yes (Other)
  Sender: FDA-Public Use
  Company Number: TH-TEVA-2020-TH-1808210

PATIENT
  Age: 69 Year
  Sex: Male

DRUGS (3)
  1. TENOFOVIR [Concomitant]
     Active Substance: TENOFOVIR
     Indication: ANTIVIRAL TREATMENT
  2. ACITRETIN UNK [Suspect]
     Active Substance: ACITRETIN
     Indication: PSORIASIS
     Route: 065
  3. LAMIVUDINE. [Concomitant]
     Active Substance: LAMIVUDINE
     Indication: ANTIVIRAL TREATMENT

REACTIONS (1)
  - Hepatic cirrhosis [Unknown]
